FAERS Safety Report 23351565 (Version 2)
Quarter: 2024Q1

REPORT INFORMATION
  Report Type: Spontaneous
  Country: DE (occurrence: None)
  Receive Date: 20231229
  Receipt Date: 20240102
  Transmission Date: 20240409
  Serious: Yes (Hospitalization, Other)
  Sender: FDA-Public Use
  Company Number: 2023A290608

PATIENT
  Age: 1 Day
  Sex: Male
  Weight: 2.2 kg

DRUGS (4)
  1. METOPROLOL [Suspect]
     Active Substance: METOPROLOL
     Indication: Hypertension
     Dosage: 142.5 [MG/D ]/ 95 - 0 - 47.5 MG DAILY
     Dates: start: 20220903, end: 20230520
  2. QUETIAPINE [Suspect]
     Active Substance: QUETIAPINE
     Indication: Depression
     Dosage: 50 MILLIGRAM, QD
     Dates: start: 20220903, end: 20230520
  3. FLUOXETINE HYDROCHLORIDE [Suspect]
     Active Substance: FLUOXETINE HYDROCHLORIDE
     Indication: Depression
     Dosage: 60 MILLIGRAM, QD, 3 SEPARATED DOSES
     Dates: start: 20220903, end: 20230520
  4. FOLIC ACID [Concomitant]
     Active Substance: FOLIC ACID
     Indication: Prophylaxis of neural tube defect
     Dosage: UNK, FOLSAURE
     Route: 064

REACTIONS (8)
  - Foetal exposure during pregnancy [Unknown]
  - Oxygen saturation decreased [Recovered/Resolved]
  - Bradycardia neonatal [Recovered/Resolved]
  - Temperature regulation disorder [Recovered/Resolved]
  - Small for dates baby [Recovered/Resolved]
  - Hypotonia [Recovered/Resolved]
  - Hypoglycaemia neonatal [Recovered/Resolved]
  - Neonatal respiratory distress syndrome [Recovered/Resolved]

NARRATIVE: CASE EVENT DATE: 20230501
